FAERS Safety Report 6741809-9 (Version None)
Quarter: 2010Q2

REPORT INFORMATION
  Report Type: 
  Country: None (occurrence: None)
  Receive Date: 20100524
  Receipt Date: 20100514
  Transmission Date: 20101027
  Serious: No
  Sender: FDA-Public Use
  Company Number: 576633

PATIENT
  Age: 38 Year
  Sex: Female

DRUGS (7)
  1. METHOTREXATE [Suspect]
     Indication: CHEMOTHERAPY
     Dosage: 5075 MG, ONCE, INTRAVENOUS, 12 MG, ONCE
     Route: 042
     Dates: start: 20100309, end: 20100309
  2. METHOTREXATE [Suspect]
     Indication: CHEMOTHERAPY
     Dosage: 5075 MG, ONCE, INTRAVENOUS, 12 MG, ONCE
     Route: 042
     Dates: start: 20100309, end: 20100309
  3. VINCRISTINE SULFATE [Suspect]
     Indication: CHEMOTHERAPY
     Dosage: 2 MG, ONCE, INTRAVENOUS
     Route: 042
     Dates: start: 20100309, end: 20100309
  4. LEUCOVORIN CALCIUM [Suspect]
     Indication: CHEMOTHERAPY
     Dosage: 36 MG, ONCE, INTRAVENOUS
     Route: 042
     Dates: start: 20100309, end: 20100309
  5. PROCARBAZINE [Suspect]
     Indication: CHEMOTHERAPY
     Dosage: 150 MG, ONCE A DAY, ORAL
     Route: 048
     Dates: start: 20100309, end: 20100309
  6. PROCARBAZINE [Suspect]
     Indication: CHEMOTHERAPY
     Dosage: 150 MG, ONCE A DAY, ORAL
     Route: 048
  7. PROCARBAZINE [Suspect]
     Indication: CHEMOTHERAPY
     Dosage: 150 MG, ONCE A DAY, ORAL
     Route: 048

REACTIONS (5)
  - ERYTHEMA [None]
  - LIP SWELLING [None]
  - OEDEMA PERIPHERAL [None]
  - PRURITUS [None]
  - URTICARIA [None]
